FAERS Safety Report 8248735-7 (Version None)
Quarter: 2012Q1

REPORT INFORMATION
  Report Type: 
  Country: None (occurrence: None)
  Receive Date: 20120331
  Receipt Date: 20120327
  Transmission Date: 20120608
  Serious: Yes (Other)
  Sender: FDA-Public Use
  Company Number: PHHY2012FR023282

PATIENT
  Sex: Female
  Weight: 69 kg

DRUGS (3)
  1. ZOLEDRONOC ACID [Suspect]
     Indication: OSTEOPOROSIS
     Dosage: UNK UKN, UNK
     Route: 042
     Dates: start: 20100101
  2. LEXOMIL [Concomitant]
     Dosage: 0.5 DF, UNK
  3. PANTOPRAZOLE SODIUM [Concomitant]
     Indication: REFLUX GASTRITIS
     Dosage: 20 MG, QD

REACTIONS (4)
  - PYREXIA [None]
  - DYSPNOEA [None]
  - EPISTAXIS [None]
  - HEADACHE [None]
